FAERS Safety Report 18656560 (Version 1)
Quarter: 2020Q4

REPORT INFORMATION
  Report Type: Spontaneous
  Country: SA (occurrence: SA)
  Receive Date: 20201224
  Receipt Date: 20201224
  Transmission Date: 20210114
  Serious: Yes (Other)
  Sender: FDA-Public Use
  Company Number: SA-AMGEN-SAUSP2020204672

PATIENT

DRUGS (3)
  1. DARBEPOETIN ALFA [Suspect]
     Active Substance: DARBEPOETIN ALFA
     Dosage: UNK, QMO
     Route: 042
  2. IRON [Concomitant]
     Active Substance: IRON
     Indication: NEPHROGENIC ANAEMIA
     Dosage: UNK
     Route: 042
  3. DARBEPOETIN ALFA [Suspect]
     Active Substance: DARBEPOETIN ALFA
     Indication: NEPHROGENIC ANAEMIA
     Dosage: 1 MICROGRAM, Q2WK
     Route: 042

REACTIONS (3)
  - Gastrointestinal haemorrhage [Unknown]
  - Adverse event [Unknown]
  - Renal transplant [Unknown]
